FAERS Safety Report 4599290-4 (Version None)
Quarter: 2005Q1

REPORT INFORMATION
  Report Type: 
  Country: None (occurrence: None)
  Receive Date: 20050302
  Receipt Date: 20050302
  Transmission Date: 20050727
  Serious: Yes (Hospitalization)
  Sender: FDA-Public Use
  Company Number: None

PATIENT
  Age: 71 Year
  Sex: Male
  Weight: 87.0906 kg

DRUGS (19)
  1. WARFARIN [Suspect]
     Indication: DEEP VEIN THROMBOSIS
     Dosage: 5MG/2.5MG  TIW/QIW  ORAL
     Route: 048
  2. LEVOFLOXACIN [Concomitant]
  3. LISINOPRIL [Concomitant]
  4. FLOMAX [Concomitant]
  5. ASPIRIN [Concomitant]
  6. SYNTHROID [Concomitant]
  7. PRILOSEC [Concomitant]
  8. M.V.I. [Concomitant]
  9. MIRALAX [Concomitant]
  10. BOWEL CARE OF CHOICE [Concomitant]
  11. FLEET ENEMA [Concomitant]
  12. MOM [Concomitant]
  13. ALBUTEROL/ATROVENT [Concomitant]
  14. TYLENOL (CAPLET) [Concomitant]
  15. COLACE [Concomitant]
  16. NIFEREX [Concomitant]
  17. ADVAIR DISKUS 100/50 [Concomitant]
  18. LASIX [Concomitant]
  19. POTASSIUM CHLORIDE [Concomitant]

REACTIONS (4)
  - ANAEMIA [None]
  - DRUG TOXICITY [None]
  - GASTROINTESTINAL HAEMORRHAGE [None]
  - INTERNATIONAL NORMALISED RATIO INCREASED [None]
